FAERS Safety Report 10978298 (Version 3)
Quarter: 2015Q2

REPORT INFORMATION
  Report Type: Spontaneous
  Country: DE (occurrence: DE)
  Receive Date: 20150402
  Receipt Date: 20150505
  Transmission Date: 20150821
  Serious: Yes (Death, Hospitalization)
  Sender: FDA-Public Use
  Company Number: PHHY2015DE017229

PATIENT
  Age: 46 Year
  Sex: Female

DRUGS (2)
  1. AFINITOR [Suspect]
     Active Substance: EVEROLIMUS
     Indication: BREAST CANCER
     Route: 065
  2. EXEMESTANE. [Concomitant]
     Active Substance: EXEMESTANE
     Indication: PRODUCT USED FOR UNKNOWN INDICATION
     Route: 065

REACTIONS (12)
  - Lymphangiosis carcinomatosa [Fatal]
  - Metastases to central nervous system [Fatal]
  - Alveolitis [Unknown]
  - Drug ineffective [Unknown]
  - Respiratory failure [Fatal]
  - Dyspnoea [Unknown]
  - Metastases to lung [Fatal]
  - Hypoxia [Fatal]
  - Malignant neoplasm progression [Fatal]
  - Metastases to liver [Fatal]
  - Pneumonitis [Unknown]
  - Pneumonia [Unknown]
